FAERS Safety Report 5914646-2 (Version None)
Quarter: 2008Q4

REPORT INFORMATION
  Report Type: 
  Country: None (occurrence: None)
  Receive Date: 20081008
  Receipt Date: 20080925
  Transmission Date: 20090506
  Serious: Yes (Other)
  Sender: FDA-Public Use
  Company Number: 430066J08USA

PATIENT
  Age: 51 Year
  Sex: Female
  Weight: 86 kg

DRUGS (5)
  1. NOVANTRONE [Suspect]
     Indication: MULTIPLE SCLEROSIS
     Dosage: 3 IN 1 MONTHS, INTRAVENOUS
     Route: 042
     Dates: start: 20060301, end: 20080501
  2. TYLENOL(COTYLENOL) [Concomitant]
  3. IMODIUM [Concomitant]
  4. TOPROL-XL [Concomitant]
  5. LEXAPRO [Concomitant]

REACTIONS (2)
  - VAGINAL CANCER [None]
  - VULVOVAGINAL PRURITUS [None]
